FAERS Safety Report 9802852 (Version 3)
Quarter: 2014Q1

REPORT INFORMATION
  Report Type: Spontaneous
  Country: US (occurrence: US)
  Receive Date: 20140108
  Receipt Date: 20140121
  Transmission Date: 20141002
  Serious: Yes (Death, Hospitalization, Other)
  Sender: FDA-Public Use
  Company Number: US-MERCK-1401USA002306

PATIENT
  Age: 52 Year
  Sex: Female

DRUGS (9)
  1. VICTRELIS [Suspect]
     Indication: HEPATITIS C
     Dosage: 800.00 MG, TID
     Route: 048
     Dates: start: 20131225
  2. PEGINTRON [Suspect]
     Indication: CHRONIC HEPATITIS C
     Dosage: 80 MICROGRAM, ONCE A WEEK,REDIPEN
     Route: 058
     Dates: start: 20131127
  3. PHENERGAN (PROMETHAZINE HYDROCHLORIDE) [Concomitant]
  4. LACTULOSE [Concomitant]
  5. XIFAXAN [Concomitant]
  6. PROAIR (ALBUTEROL SULFATE) [Concomitant]
  7. MS CONTIN [Concomitant]
  8. BENTYL [Concomitant]
  9. OXYCODONE [Concomitant]

REACTIONS (8)
  - Death [Fatal]
  - Myocardial infarction [Unknown]
  - Brain death [Unknown]
  - Loss of consciousness [Unknown]
  - Flatulence [Unknown]
  - Malaise [Unknown]
  - Headache [Unknown]
  - Headache [Unknown]
